FAERS Safety Report 10756177 (Version 1)
Quarter: 2015Q1

REPORT INFORMATION
  Report Type: Spontaneous
  Country: US (occurrence: None)
  Receive Date: 20150123
  Receipt Date: 20150123
  Transmission Date: 20150721
  Serious: Yes (Other)
  Sender: FDA-Public Use
  Company Number: 2014TUS009640

PATIENT
  Age: 35 Year
  Sex: Female
  Weight: 45.8 kg

DRUGS (1)
  1. ENTYVIO [Suspect]
     Active Substance: VEDOLIZUMAB
     Indication: CROHN^S DISEASE
     Dosage: 300 MG, FIRST DOSE, INTRAVENOUS
     Route: 042
     Dates: start: 20140818, end: 20140818

REACTIONS (5)
  - Alopecia [None]
  - Arthralgia [None]
  - Migraine [None]
  - Fatigue [None]
  - Dystonia [None]

NARRATIVE: CASE EVENT DATE: 20140818
